FAERS Safety Report 24458157 (Version 3)
Quarter: 2024Q4

REPORT INFORMATION
  Report Type: Spontaneous
  Country: US (occurrence: US)
  Receive Date: 20241018
  Receipt Date: 20241129
  Transmission Date: 20250114
  Serious: No
  Sender: NOVO NORDISK
  Company Number: US-NOVOPROD-1298300

PATIENT
  Age: 66 Year
  Sex: Female

DRUGS (2)
  1. WEGOVY [Suspect]
     Active Substance: SEMAGLUTIDE
     Indication: Weight control
     Dosage: 2.4 MG, QW
     Route: 058
     Dates: start: 20231101
  2. CASTOR OIL [Concomitant]
     Active Substance: CASTOR OIL
     Indication: Inflammation
     Dosage: UNK

REACTIONS (2)
  - Constipation [Recovered/Resolved]
  - Back pain [Not Recovered/Not Resolved]
